FAERS Safety Report 15675072 (Version 2)
Quarter: 2018Q4

REPORT INFORMATION
  Report Type: Spontaneous
  Country: US (occurrence: US)
  Receive Date: 20181130
  Receipt Date: 20181130
  Transmission Date: 20190205
  Serious: No
  Sender: FDA-Public Use
  Company Number: US-PFIZER INC-2018480322

PATIENT
  Sex: Female

DRUGS (1)
  1. XELJANZ [Suspect]
     Active Substance: TOFACITINIB CITRATE
     Dosage: 5 MG, 2X/DAY

REACTIONS (6)
  - Constipation [Unknown]
  - Malaise [Unknown]
  - Anorectal discomfort [Unknown]
  - Abdominal pain upper [Unknown]
  - Micturition disorder [Unknown]
  - Red blood cell count decreased [Unknown]
